FAERS Safety Report 10221995 (Version 1)
Quarter: 2014Q2

REPORT INFORMATION
  Report Type: Spontaneous
  Country: US (occurrence: None)
  Receive Date: 20140606
  Receipt Date: 20140606
  Transmission Date: 20141212
  Serious: Yes (Other)
  Sender: FDA-Public Use
  Company Number: None

PATIENT
  Age: 55 Year
  Sex: Female
  Weight: 68.04 kg

DRUGS (1)
  1. LEVOFLOXACIN [Suspect]
     Indication: COUGH
     Route: 048
     Dates: start: 20140519, end: 20140524

REACTIONS (8)
  - Myalgia [None]
  - Back pain [None]
  - Joint swelling [None]
  - Pain [None]
  - Abasia [None]
  - Inflammation [None]
  - Rash [None]
  - Arthralgia [None]
